FAERS Safety Report 25400733 (Version 3)
Quarter: 2025Q3

REPORT INFORMATION
  Report Type: Report from Study
  Country: US (occurrence: US)
  Receive Date: 20250605
  Receipt Date: 20250703
  Transmission Date: 20251020
  Serious: No
  Sender: JOHNSON AND JOHNSON
  Company Number: US-JNJFOC-20250529429

PATIENT
  Age: 57 Year
  Sex: Male

DRUGS (2)
  1. GUSELKUMAB [Suspect]
     Active Substance: GUSELKUMAB
     Indication: Psoriatic arthropathy
     Route: 058
     Dates: start: 20241219
  2. GUSELKUMAB [Suspect]
     Active Substance: GUSELKUMAB
     Route: 058
     Dates: start: 20241219

REACTIONS (3)
  - Inappropriate schedule of product administration [Unknown]
  - Needle issue [Unknown]
  - Product administration error [Unknown]

NARRATIVE: CASE EVENT DATE: 20250327
